FAERS Safety Report 6146762-7 (Version None)
Quarter: 2009Q2

REPORT INFORMATION
  Report Type: 
  Country: None (occurrence: None)
  Receive Date: 20090403
  Receipt Date: 20090403
  Transmission Date: 20091009
  Serious: No
  Sender: FDA-Public Use
  Company Number: None

PATIENT
  Age: 50 Year
  Sex: Male
  Weight: 88.4514 kg

DRUGS (2)
  1. METOPROLOL TARTRATE [Suspect]
     Indication: ATRIAL FIBRILLATION
     Dosage: 50MG  1 TIME PER DAY PO
     Route: 048
     Dates: start: 20060201
  2. TOPROL-XL [Suspect]

REACTIONS (7)
  - AMNESIA [None]
  - FATIGUE [None]
  - HEADACHE [None]
  - HEART RATE INCREASED [None]
  - NOCTURNAL DYSPNOEA [None]
  - PAIN IN EXTREMITY [None]
  - VISUAL IMPAIRMENT [None]
